FAERS Safety Report 8616189-4 (Version None)
Quarter: 2012Q3

REPORT INFORMATION
  Report Type: 
  Country: None (occurrence: None)
  Receive Date: 20120809
  Receipt Date: 20120806
  Transmission Date: 20120928
  Serious: Yes (Hospitalization)
  Sender: FDA-Public Use
  Company Number: DAV-AE-MTX-12-44 (02)

PATIENT
  Age: 55 Year
  Sex: Female
  Weight: 105.5 kg

DRUGS (11)
  1. PREDNISONE TAB [Concomitant]
  2. GLYCERYL TRINITRATE (GLYCERYL TRINITATE) [Concomitant]
  3. CEPHALEXIN [Concomitant]
  4. MELOXICAM [Concomitant]
  5. HUMIRA [Suspect]
     Indication: RHEUMATOID ARTHRITIS
     Dosage: (1 IN 2 WK), SC
     Route: 058
     Dates: start: 20120517
  6. HUMIRA [Suspect]
     Indication: RHEUMATOID ARTHRITIS
     Dosage: (1 IN 2 WK), SC
     Route: 058
     Dates: start: 20120405, end: 20120419
  7. COMMERCIAL METHOTREXATE (METHOTREXATE SODIUM) [Concomitant]
  8. METHOTREXATE [Suspect]
     Indication: RHEUMATOID ARTHRITIS
     Dosage: (1 IN 1 WK), ORAL
     Route: 048
     Dates: start: 20120517
  9. METHOTREXATE [Suspect]
     Indication: RHEUMATOID ARTHRITIS
     Dosage: (1 IN 1 WK), ORAL
     Route: 048
     Dates: start: 20120405, end: 20120426
  10. FOLIC ACID [Concomitant]
  11. BACTRIM [Concomitant]

REACTIONS (1)
  - PNEUMONIA LEGIONELLA [None]
